FAERS Safety Report 9731756 (Version 1)
Quarter: 2013Q4

REPORT INFORMATION
  Report Type: Spontaneous
  Country: US (occurrence: None)
  Receive Date: 20131204
  Receipt Date: 20131204
  Transmission Date: 20140711
  Serious: Yes (Life-Threatening, Hospitalization, Disabling, Other)
  Sender: FDA-Public Use
  Company Number: None

PATIENT
  Sex: 0

DRUGS (5)
  1. ZOFRAN [Suspect]
     Indication: ABDOMINAL DISCOMFORT
     Route: 042
     Dates: start: 20121214, end: 20121215
  2. ZOFRAN [Suspect]
     Indication: NAUSEA
     Route: 042
     Dates: start: 20121214, end: 20121215
  3. ZOFRAN [Suspect]
     Indication: PANCREATITIS
     Route: 042
     Dates: start: 20121214, end: 20121215
  4. SOTALOL [Suspect]
  5. SIMVASTATIN [Suspect]

REACTIONS (3)
  - Nausea [None]
  - Vomiting [None]
  - Off label use [None]
